FAERS Safety Report 5981158-X (Version None)
Quarter: 2008Q4

REPORT INFORMATION
  Report Type: 
  Country: None (occurrence: None)
  Receive Date: 20081205
  Receipt Date: 20081126
  Transmission Date: 20090506
  Serious: Yes (Hospitalization, Congenital Anomaly)
  Sender: FDA-Public Use
  Company Number: A0758342B

PATIENT

DRUGS (6)
  1. LAMICTAL [Suspect]
     Indication: EPILEPSY
  2. OXCARBAZEPINE [Concomitant]
  3. LORAZEPAM [Concomitant]
  4. FOLIC ACID [Concomitant]
  5. VITAMIN TAB [Concomitant]
  6. PROPRANOLOL [Concomitant]
     Indication: MIGRAINE PROPHYLAXIS

REACTIONS (3)
  - CLEFT PALATE [None]
  - DRUG EXPOSURE DURING PREGNANCY [None]
  - FEEDING DISORDER NEONATAL [None]
